FAERS Safety Report 10267799 (Version 1)
Quarter: 2014Q2

REPORT INFORMATION
  Report Type: Spontaneous
  Country: US (occurrence: None)
  Receive Date: 20140626
  Receipt Date: 20140626
  Transmission Date: 20141212
  Serious: Yes (Hospitalization)
  Sender: FDA-Public Use
  Company Number: None

PATIENT
  Age: 64 Year
  Sex: Male
  Weight: 73.2 kg

DRUGS (2)
  1. NAPROXEN [Suspect]
     Indication: PAIN
     Dates: end: 20120130
  2. ASPIRIN [Suspect]
     Indication: CARDIOVASCULAR EVENT PROPHYLAXIS
     Dates: end: 20120130

REACTIONS (3)
  - Haematochezia [None]
  - Pallor [None]
  - Gastric haemorrhage [None]
